FAERS Safety Report 26182392 (Version 1)
Quarter: 2025Q4

REPORT INFORMATION
  Report Type: Spontaneous
  Country: BH (occurrence: BH)
  Receive Date: 20251221
  Receipt Date: 20251221
  Transmission Date: 20260118
  Serious: Yes (Life-Threatening, Hospitalization, Disabling)
  Sender: ACCORD
  Company Number: BH-MLMSERVICE-20251201-PI733270-00057-1

PATIENT
  Sex: Male

DRUGS (4)
  1. ATORVASTATIN [Suspect]
     Active Substance: ATORVASTATIN
     Indication: Dyslipidaemia
     Dates: start: 2016, end: 2023
  2. BIPHASIC INSULIN INJECTION [Concomitant]
     Dates: start: 2016
  3. METFORMIN [Concomitant]
     Active Substance: METFORMIN HYDROCHLORIDE
     Dates: start: 2016
  4. VILDAGLIPTIN [Concomitant]
     Active Substance: VILDAGLIPTIN
     Dates: start: 2016

REACTIONS (2)
  - Autoimmune myositis [Recovering/Resolving]
  - Bedridden [Recovering/Resolving]
